FAERS Safety Report 20136593 (Version 1)
Quarter: 2021Q4

REPORT INFORMATION
  Report Type: Spontaneous
  Country: US (occurrence: None)
  Receive Date: 20211201
  Receipt Date: 20211201
  Transmission Date: 20220303
  Serious: Yes (Other)
  Sender: FDA-Public Use
  Company Number: None

PATIENT
  Age: 23 Year
  Sex: Female
  Weight: 58.5 kg

DRUGS (1)
  1. SINGULAIR [Suspect]
     Active Substance: MONTELUKAST SODIUM
     Indication: Rhinitis allergic
     Dosage: OTHER QUANTITY : 1 TABLET(S);?FREQUENCY : AT BEDTIME;?
     Route: 048
     Dates: start: 20110101, end: 20211128

REACTIONS (21)
  - Agitation [None]
  - Aggression [None]
  - Hostility [None]
  - Disturbance in attention [None]
  - Abnormal dreams [None]
  - Depression [None]
  - Disorientation [None]
  - Confusional state [None]
  - Anxiety [None]
  - Hallucination [None]
  - Irritability [None]
  - Memory impairment [None]
  - Obsessive-compulsive disorder [None]
  - Somnambulism [None]
  - Restlessness [None]
  - Dysphemia [None]
  - Suicidal ideation [None]
  - Tremor [None]
  - Initial insomnia [None]
  - Dyskinesia [None]
  - Therapy cessation [None]

NARRATIVE: CASE EVENT DATE: 20110101
